FAERS Safety Report 7212943-4 (Version None)
Quarter: 2011Q1

REPORT INFORMATION
  Report Type: 
  Country: None (occurrence: None)
  Receive Date: 20110106
  Receipt Date: 20101231
  Transmission Date: 20110831
  Serious: No
  Sender: FDA-Public Use
  Company Number: US-PFIZER INC-2010182515

PATIENT
  Sex: Male
  Weight: 92.971 kg

DRUGS (6)
  1. VITAMIN D [Concomitant]
     Dosage: 400 MG, 1X/DAY
     Route: 048
  2. HYDROCHLOROTHIAZIDE [Concomitant]
     Indication: HYPERTENSION
     Dosage: 5 MG, 5X/DAY
     Route: 048
  3. AMLODIPINE BESILATE [Concomitant]
     Indication: HYPERTENSION
     Dosage: 5 MG, 1X/DAY
     Route: 048
  4. ACETYLSALICYLIC ACID [Concomitant]
     Indication: HYPERTENSION
     Dosage: 81 MG, 1X/DAY
     Route: 048
  5. CHANTIX [Suspect]
     Indication: SMOKING CESSATION THERAPY
     Dosage: 1 MG, 2X/DAY
     Route: 048
     Dates: start: 20101201
  6. DILTIAZEM [Concomitant]
     Indication: HYPERTENSION
     Dosage: 180 MG, 1X/DAY
     Route: 048

REACTIONS (8)
  - STOMATITIS [None]
  - HEADACHE [None]
  - GLOSSODYNIA [None]
  - FLATULENCE [None]
  - CONSTIPATION [None]
  - ORAL PAIN [None]
  - GINGIVAL PAIN [None]
  - GINGIVAL SWELLING [None]
